FAERS Safety Report 19651504 (Version 1)
Quarter: 2021Q3

REPORT INFORMATION
  Report Type: Spontaneous
  Country: US (occurrence: US)
  Receive Date: 20210803
  Receipt Date: 20210803
  Transmission Date: 20211014
  Serious: No
  Sender: FDA-Public Use
  Company Number: US-TORRENT-00011189

PATIENT
  Age: 75 Year
  Sex: Female

DRUGS (1)
  1. ZOLPIDEM TARTRATE TABLETS [Suspect]
     Active Substance: ZOLPIDEM TARTRATE
     Indication: SLEEP DISORDER
     Dosage: 10 MG FROM COUPLE OF YEAR

REACTIONS (2)
  - Pharyngeal swelling [Not Recovered/Not Resolved]
  - Blister [Not Recovered/Not Resolved]
